FAERS Safety Report 9227164 (Version 1)
Quarter: 2013Q1

REPORT INFORMATION
  Report Type: Spontaneous
  Country: US (occurrence: None)
  Receive Date: 20121012
  Receipt Date: 20121012
  Transmission Date: 20140127
  Serious: Yes (Other)
  Sender: FDA-Public Use
  Company Number: 1000029263

PATIENT
  Age: 40 Year
  Sex: Male

DRUGS (2)
  1. LEXAPRO [Suspect]
     Indication: DEPRESSION
     Dates: start: 2008
  2. WELLBURTIN (BUPROPION HYDROCHLORIDE) (BUPROPION HYDROCHLORIDE) [Concomitant]

REACTIONS (8)
  - Suicidal ideation [None]
  - Weight increased [None]
  - Hyperhidrosis [None]
  - Tremor [None]
  - Feeling cold [None]
  - Irritability [None]
  - Blood testosterone decreased [None]
  - Libido decreased [None]
